FAERS Safety Report 12851819 (Version 3)
Quarter: 2016Q4

REPORT INFORMATION
  Report Type: Report from Study
  Country: LB (occurrence: LB)
  Receive Date: 20161017
  Receipt Date: 20161122
  Transmission Date: 20170207
  Serious: Yes (Hospitalization)
  Sender: FDA-Public Use
  Company Number: PHHY2016LB140164

PATIENT
  Age: 73 Year
  Sex: Male

DRUGS (1)
  1. ENTRESTO [Suspect]
     Active Substance: SACUBITRIL\VALSARTAN
     Indication: CARDIAC FAILURE
     Dosage: 50 MG, UNK
     Route: 065
     Dates: start: 20160920

REACTIONS (8)
  - Oedema peripheral [Recovering/Resolving]
  - Blood uric acid increased [Unknown]
  - Abdominal pain [Unknown]
  - Blood urea increased [Unknown]
  - Peripheral swelling [Not Recovered/Not Resolved]
  - Dyspnoea [Unknown]
  - Glycosylated haemoglobin increased [Unknown]
  - Pain in extremity [Not Recovered/Not Resolved]

NARRATIVE: CASE EVENT DATE: 20161008
